FAERS Safety Report 5243472-5 (Version None)
Quarter: 2007Q1

REPORT INFORMATION
  Report Type: 
  Country: None (occurrence: None)
  Receive Date: 20070222
  Receipt Date: 20070206
  Transmission Date: 20070707
  Serious: Yes (Other)
  Sender: FDA-Public Use
  Company Number: PHEH2007US01802

PATIENT
  Age: 53 Year
  Sex: Male
  Weight: 75.7 kg

DRUGS (21)
  1. MELPHALAN [Concomitant]
  2. HYDROCODONE [Concomitant]
  3. INDOMETHACIN [Concomitant]
  4. ZOLOFT [Concomitant]
  5. CIALIS [Concomitant]
  6. DIOVAN [Concomitant]
  7. SINGULAIR [Concomitant]
  8. SUCRALFATE [Concomitant]
  9. ZOMETA [Suspect]
     Indication: MULTIPLE MYELOMA
     Dosage: 4 MG EVERY 30 DAYS
  10. AREDIA [Suspect]
     Indication: OSTEOPOROSIS PROPHYLAXIS
     Dosage: ONCE A MONTH
  11. VINCRISTINE + ADRIAMYCIN + DEXAMETHASONE [Concomitant]
     Indication: MULTIPLE MYELOMA
     Dosage: SIX CYCLES
  12. DEXAMETHASONE [Concomitant]
     Dosage: 40 MG, QD X 4 EVERY MONTH
     Route: 048
  13. CYTOXAN [Concomitant]
     Dates: start: 20040730
  14. DIOVAN HCT [Concomitant]
     Dosage: 160/12.5 MG
     Route: 048
  15. DILTIAZEM [Concomitant]
     Dosage: 240 MG, QD
     Route: 048
  16. VICODIN [Concomitant]
     Indication: NEURALGIA
     Dosage: UNK, PRN
  17. NEURONTIN [Concomitant]
     Dosage: 300 MG, BID
     Route: 048
  18. PREVACID [Concomitant]
     Dosage: 30 MG, BID
     Route: 048
  19. ALLEGRA D 24 HOUR [Concomitant]
     Dosage: UNK, PRN
  20. REMERON [Concomitant]
     Dosage: 30 MG, QHS
     Route: 048
  21. LEUKOPHERESIS [Suspect]
     Dates: start: 20040811

REACTIONS (11)
  - ANAEMIA [None]
  - BLOOD CREATININE INCREASED [None]
  - BONE DISORDER [None]
  - DISCOMFORT [None]
  - HAEMATOCRIT DECREASED [None]
  - HAEMOGLOBIN DECREASED [None]
  - HYPERCALCAEMIA [None]
  - OSTEONECROSIS [None]
  - PROTEIN TOTAL INCREASED [None]
  - RED BLOOD CELL COUNT DECREASED [None]
  - RENAL FAILURE [None]
